FAERS Safety Report 8254411 (Version 6)
Quarter: 2013Q4

REPORT INFORMATION
  Report Type: Spontaneous
  Country: FR (occurrence: FR)
  Receive Date: 20111118
  Receipt Date: 20131029
  Transmission Date: 20140711
  Serious: Yes (Death, Other)
  Sender: FDA-Public Use
  Company Number: FR-PFIZER INC-2011205550

PATIENT
  Age: 43 Year
  Sex: Male
  Weight: 80 kg

DRUGS (3)
  1. ZOLOFT [Suspect]
     Indication: DEPRESSION
     Dosage: 25 MG, 1X/DAY
     Dates: start: 20100415, end: 20100417
  2. ZOLOFT [Suspect]
     Dosage: 50 MG, 1X/DAY
     Dates: start: 20100418
  3. XANAX [Suspect]
     Indication: DEPRESSION
     Dosage: 0.25 MG, 1X/DAY (EVENING)
     Route: 048
     Dates: start: 20100415

REACTIONS (3)
  - Completed suicide [Fatal]
  - Anxiety [Fatal]
  - Disinhibition [Unknown]
